FAERS Safety Report 9996754 (Version 1)
Quarter: 2014Q1

REPORT INFORMATION
  Report Type: Spontaneous
  Country: US (occurrence: US)
  Receive Date: 20140311
  Receipt Date: 20140311
  Transmission Date: 20141002
  Serious: No
  Sender: FDA-Public Use
  Company Number: US-GLAXOSMITHKLINE-A1023028A

PATIENT
  Age: 55 Year
  Sex: Male

DRUGS (1)
  1. NICORETTE OTC 4MG [Suspect]
     Indication: PRODUCT USED FOR UNKNOWN INDICATION

REACTIONS (12)
  - Adverse event [Not Recovered/Not Resolved]
  - Tinnitus [Not Recovered/Not Resolved]
  - Blood pressure fluctuation [Not Recovered/Not Resolved]
  - Hypertension [Not Recovered/Not Resolved]
  - Intentional drug misuse [Not Recovered/Not Resolved]
  - Toothache [Not Recovered/Not Resolved]
  - Tooth erosion [Not Recovered/Not Resolved]
  - Tooth fracture [Not Recovered/Not Resolved]
  - Device failure [Not Recovered/Not Resolved]
  - Energy increased [Not Recovered/Not Resolved]
  - Tension [Not Recovered/Not Resolved]
  - Drug administration error [Unknown]
